FAERS Safety Report 19827037 (Version 1)
Quarter: 2021Q3

REPORT INFORMATION
  Report Type: Spontaneous
  Country: US (occurrence: US)
  Receive Date: 20210914
  Receipt Date: 20210914
  Transmission Date: 20211014
  Serious: Yes (Hospitalization)
  Sender: FDA-Public Use
  Company Number: US-STRIDES ARCOLAB LIMITED-2020SP013174

PATIENT
  Age: 31 Year
  Sex: Male

DRUGS (2)
  1. SIROLIMUS. [Concomitant]
     Active Substance: SIROLIMUS
     Indication: RENAL TRANSPLANT
     Dosage: UNK
     Route: 065
  2. TACROLIMUS. [Suspect]
     Active Substance: TACROLIMUS
     Indication: RENAL TRANSPLANT
     Dosage: UNK
     Route: 065

REACTIONS (11)
  - Toxicity to various agents [Unknown]
  - Anaemia [Recovered/Resolved]
  - Diarrhoea [Unknown]
  - Microangiopathic haemolytic anaemia [Unknown]
  - Acute kidney injury [Recovered/Resolved]
  - Transplant rejection [Unknown]
  - Thrombotic thrombocytopenic purpura [Unknown]
  - Abdominal pain [Unknown]
  - Thrombotic microangiopathy [Unknown]
  - Thrombocytopenia [Recovered/Resolved]
  - Clostridium difficile infection [Unknown]
